FAERS Safety Report 5044417-3 (Version None)
Quarter: 2006Q2

REPORT INFORMATION
  Report Type: 
  Country: None (occurrence: None)
  Receive Date: 20060629
  Receipt Date: 20060622
  Transmission Date: 20061013
  Serious: No
  Sender: FDA-Public Use
  Company Number: 2006078615

PATIENT
  Sex: Female

DRUGS (1)
  1. FLUCONAZOLE [Suspect]
     Indication: CANDIDIASIS
     Dosage: 150 MG (150 MG, 1 IN 1 TOTAL), ORAL
     Route: 048
     Dates: start: 20060515, end: 20060515

REACTIONS (7)
  - ERYTHEMA [None]
  - FEELING ABNORMAL [None]
  - PHARYNGEAL OEDEMA [None]
  - PRURITUS [None]
  - RASH MACULAR [None]
  - SINUS DISORDER [None]
  - SWELLING [None]
